FAERS Safety Report 15363431 (Version 1)
Quarter: 2018Q3

REPORT INFORMATION
  Report Type: Report from Study
  Country: CA (occurrence: CA)
  Receive Date: 20180907
  Receipt Date: 20180907
  Transmission Date: 20181010
  Serious: Yes (Other)
  Sender: FDA-Public Use
  Company Number: PHHY2018CA089378

PATIENT
  Age: 43 Year
  Sex: Female

DRUGS (6)
  1. GILENYA [Suspect]
     Active Substance: FINGOLIMOD HYDROCHLORIDE
     Indication: PRODUCT USED FOR UNKNOWN INDICATION
     Dosage: UNK
     Route: 048
     Dates: start: 20170811
  2. VALACYCLOVIR [Concomitant]
     Active Substance: VALACYCLOVIR HYDROCHLORIDE
     Indication: PRODUCT USED FOR UNKNOWN INDICATION
     Dosage: 4 DF, BID
     Route: 048
  3. FAMPYRA [Concomitant]
     Active Substance: DALFAMPRIDINE
     Indication: PRODUCT USED FOR UNKNOWN INDICATION
     Dosage: 10 MG, Q12H
     Route: 048
  4. ATIVAN [Concomitant]
     Active Substance: LORAZEPAM
     Indication: PRODUCT USED FOR UNKNOWN INDICATION
     Dosage: 4 DF, QD
     Route: 048
  5. VITAMIN D3 [Concomitant]
     Active Substance: CHOLECALCIFEROL
     Indication: PRODUCT USED FOR UNKNOWN INDICATION
     Dosage: 9000 IU, QD
     Route: 048
  6. CIPRALEX [Concomitant]
     Active Substance: ESCITALOPRAM OXALATE
     Indication: PRODUCT USED FOR UNKNOWN INDICATION
     Dosage: 20 MG, QD
     Route: 048

REACTIONS (22)
  - Fall [Unknown]
  - Ligament injury [Unknown]
  - White blood cell count decreased [Unknown]
  - Fatigue [Unknown]
  - Muscle spasms [Unknown]
  - Central nervous system lesion [Unknown]
  - Muscle spasticity [Recovering/Resolving]
  - Sensory level abnormal [Unknown]
  - Expanded disability status scale score increased [Unknown]
  - Gait disturbance [Unknown]
  - Dysarthria [Unknown]
  - Neutrophil count decreased [Unknown]
  - Bladder dysfunction [Unknown]
  - Reflexes abnormal [Unknown]
  - Intention tremor [Unknown]
  - Ataxia [Unknown]
  - Back pain [Unknown]
  - Nocturia [Unknown]
  - Sleep disorder [Unknown]
  - Pollakiuria [Unknown]
  - Lymphocyte count decreased [Unknown]
  - Memory impairment [Unknown]

NARRATIVE: CASE EVENT DATE: 201806
